FAERS Safety Report 6698036-3 (Version None)
Quarter: 2010Q2

REPORT INFORMATION
  Report Type: 
  Country: None (occurrence: None)
  Receive Date: 20100427
  Receipt Date: 20100417
  Transmission Date: 20101027
  Serious: Yes (Death)
  Sender: FDA-Public Use
  Company Number: NL-TYCO HEALTHCARE/MALLINCKRODT-T201001071

PATIENT
  Age: 36 Year
  Sex: Female

DRUGS (1)
  1. OCTREOSCAN [Suspect]
     Indication: NEUROENDOCRINE TUMOUR
     Dosage: 108.72 GBQ, UNK

REACTIONS (2)
  - ACUTE MYELOID LEUKAEMIA [None]
  - NEOPLASM PROGRESSION [None]
